FAERS Safety Report 6940483-6 (Version None)
Quarter: 2010Q3

REPORT INFORMATION
  Report Type: 
  Country: None (occurrence: None)
  Receive Date: 20100825
  Receipt Date: 20100816
  Transmission Date: 20110219
  Serious: Yes (Hospitalization)
  Sender: FDA-Public Use
  Company Number: JP-ABBOTT-10P-087-0662668-00

PATIENT
  Sex: Female

DRUGS (2)
  1. LEUPROLIDE ACETATE [Suspect]
     Indication: BREAST CANCER
     Route: 058
     Dates: start: 20061225, end: 20080811
  2. NOLVADEX [Concomitant]
     Indication: BREAST CANCER
     Route: 048
     Dates: start: 20061225, end: 20100807

REACTIONS (5)
  - DENTAL CARIES [None]
  - HEPATIC STEATOSIS [None]
  - HOT FLUSH [None]
  - NASOPHARYNGITIS [None]
  - THROMBOTIC THROMBOCYTOPENIC PURPURA [None]
